FAERS Safety Report 5010958-8 (Version None)
Quarter: 2006Q2

REPORT INFORMATION
  Report Type: 
  Country: None (occurrence: None)
  Receive Date: 20060525
  Receipt Date: 20060517
  Transmission Date: 20061013
  Serious: Yes (Hospitalization)
  Sender: FDA-Public Use
  Company Number: US-JNJFOC-20060304611

PATIENT
  Sex: Female
  Weight: 58.51 kg

DRUGS (2)
  1. REMICADE [Suspect]
     Indication: RHEUMATOID ARTHRITIS
     Route: 042
  2. AMOXICILLIN [Suspect]
     Indication: URINARY TRACT INFECTION

REACTIONS (2)
  - DRUG HYPERSENSITIVITY [None]
  - URINARY TRACT INFECTION [None]
